FAERS Safety Report 7842858-X (Version None)
Quarter: 2011Q4

REPORT INFORMATION
  Report Type: 
  Country: None (occurrence: None)
  Receive Date: 20111025
  Receipt Date: 20101025
  Transmission Date: 20120403
  Serious: No
  Sender: FDA-Public Use
  Company Number: US-BAYER-201038894NA

PATIENT
  Age: 49 Year
  Sex: Male
  Weight: 76.818 kg

DRUGS (2)
  1. ULTRAVIST 370 [Suspect]
     Indication: COMPUTERISED TOMOGRAM ABDOMEN
     Dosage: UNK
     Route: 048
  2. ULTRAVIST 370 [Suspect]
     Indication: PROSTATE CANCER
     Dosage: RIGHT ANTECUBITAL USING POWER INJECTOR @ A RATE OF 2 CC/SECOND AND A WARMER @37.5 DEGREES CELCIUS
     Route: 042
     Dates: start: 20101025, end: 20101025

REACTIONS (2)
  - PRURITUS [None]
  - URTICARIA [None]
